FAERS Safety Report 10175129 (Version 1)
Quarter: 2014Q2

REPORT INFORMATION
  Report Type: Report from Study
  Country: DE (occurrence: DE)
  Receive Date: 20140515
  Receipt Date: 20140515
  Transmission Date: 20141212
  Serious: No
  Sender: FDA-Public Use
  Company Number: PHHY2014DE058757

PATIENT
  Sex: Male

DRUGS (3)
  1. AMN107 [Suspect]
     Indication: CHRONIC MYELOID LEUKAEMIA
     Dosage: 600 MG, PER DAY
     Route: 048
     Dates: start: 20130826
  2. L THYROXIN [Concomitant]
  3. LOSARTAN PLUS [Concomitant]

REACTIONS (2)
  - Dizziness [Recovered/Resolved]
  - Sleep disorder [Recovered/Resolved]
